FAERS Safety Report 15178273 (Version 3)
Quarter: 2018Q3

REPORT INFORMATION
  Report Type: Spontaneous
  Country: ES (occurrence: ES)
  Receive Date: 20180721
  Receipt Date: 20180823
  Transmission Date: 20181010
  Serious: Yes (Life-Threatening, Hospitalization, Disabling, Other)
  Sender: FDA-Public Use
  Company Number: ES-SUN PHARMACEUTICAL INDUSTRIES LTD-2018R1-179069

PATIENT
  Age: 5 Year
  Sex: Female

DRUGS (2)
  1. PARACETAMOL [Suspect]
     Active Substance: ACETAMINOPHEN
     Indication: PYREXIA
     Dosage: UNK
     Route: 065
  2. IBUPROFEN. [Suspect]
     Active Substance: IBUPROFEN
     Indication: PYREXIA
     Dosage: UNK
     Route: 065

REACTIONS (8)
  - Open globe injury [Unknown]
  - Ulcerative keratitis [Recovering/Resolving]
  - Ectropion [Unknown]
  - Stevens-Johnson syndrome [Unknown]
  - Eye disorder [Unknown]
  - Toxic epidermal necrolysis [Unknown]
  - Dry eye [Unknown]
  - Hypopyon [Recovering/Resolving]
